FAERS Safety Report 6287756-0 (Version None)
Quarter: 2009Q3

REPORT INFORMATION
  Report Type: 
  Country: None (occurrence: None)
  Receive Date: 20090727
  Receipt Date: 20090727
  Transmission Date: 20100115
  Serious: Yes (Other)
  Sender: FDA-Public Use
  Company Number: None

PATIENT
  Age: 26 Year
  Sex: Female
  Weight: 47.6277 kg

DRUGS (1)
  1. DEXTROAMPHETAMINE SULFATE [Suspect]
     Indication: HYPERSOMNIA
     Dosage: 2 TABLETS TWICE A DAY PO
     Route: 048
     Dates: start: 20090716, end: 20090723

REACTIONS (6)
  - DISEASE RECURRENCE [None]
  - DRUG INEFFECTIVE [None]
  - HYPERSOMNIA [None]
  - PRODUCT COATING ISSUE [None]
  - PRODUCT COLOUR ISSUE [None]
  - PRODUCT QUALITY ISSUE [None]
